FAERS Safety Report 17337924 (Version 2)
Quarter: 2020Q1

REPORT INFORMATION
  Report Type: Spontaneous
  Country: US (occurrence: US)
  Receive Date: 20200129
  Receipt Date: 20200211
  Transmission Date: 20200409
  Serious: No
  Sender: FDA-Public Use
  Company Number: US-SHIRE-US202003268

PATIENT
  Age: 70 Year
  Sex: Female
  Weight: 65.76 kg

DRUGS (2)
  1. GATTEX [Suspect]
     Active Substance: TEDUGLUTIDE\WATER
     Indication: SHORT-BOWEL SYNDROME
     Dosage: 0.45 UNK, 1X/DAY:QD
     Route: 065
     Dates: start: 20131009
  2. GATTEX [Suspect]
     Active Substance: TEDUGLUTIDE\WATER
     Dosage: 0.33 MILLILITER, 1X/DAY:QD
     Route: 065

REACTIONS (4)
  - Weight fluctuation [Unknown]
  - Pain [Recovering/Resolving]
  - Infusion site mass [Unknown]
  - Pyrexia [Recovering/Resolving]

NARRATIVE: CASE EVENT DATE: 20200124
